FAERS Safety Report 9061625 (Version 1)
Quarter: 2013Q1

REPORT INFORMATION
  Report Type: Spontaneous
  Country: US (occurrence: None)
  Receive Date: 20130208
  Receipt Date: 20130208
  Transmission Date: 20140127
  Serious: Yes (Life-Threatening, Other)
  Sender: FDA-Public Use
  Company Number: None

PATIENT
  Age: 53 Year
  Sex: Male
  Weight: 54.43 kg

DRUGS (2)
  1. ZYCLARA [Suspect]
     Indication: ACTINIC KERATOSIS
     Route: 061
     Dates: start: 20130110, end: 20130117
  2. ZYCLARA [Suspect]
     Indication: PRECANCEROUS SKIN LESION
     Route: 061
     Dates: start: 20130110, end: 20130117

REACTIONS (9)
  - Headache [None]
  - Influenza like illness [None]
  - Oropharyngeal pain [None]
  - Urticaria [None]
  - Pain [None]
  - Malaise [None]
  - Diarrhoea [None]
  - Vomiting [None]
  - Nephrolithiasis [None]
